FAERS Safety Report 18386842 (Version 1)
Quarter: 2020Q4

REPORT INFORMATION
  Report Type: Spontaneous
  Country: US (occurrence: US)
  Receive Date: 20201015
  Receipt Date: 20201015
  Transmission Date: 20210114
  Serious: No
  Sender: FDA-Public Use
  Company Number: None

PATIENT
  Age: 49 Year
  Sex: Female
  Weight: 103.4 kg

DRUGS (4)
  1. DEXAMETHASONE. [Concomitant]
     Active Substance: DEXAMETHASONE
     Dates: start: 20200907, end: 20200914
  2. REMDESIVIR. [Suspect]
     Active Substance: REMDESIVIR
     Route: 040
     Dates: start: 20200908, end: 20200910
  3. APIXABAN [Concomitant]
     Active Substance: APIXABAN
     Dates: start: 20200907, end: 20200914
  4. CEFTRIAXONE. [Concomitant]
     Active Substance: CEFTRIAXONE
     Dates: start: 20200907, end: 20200908

REACTIONS (2)
  - Therapy cessation [None]
  - Alanine aminotransferase increased [None]

NARRATIVE: CASE EVENT DATE: 20200910
